FAERS Safety Report 4444840-1 (Version None)
Quarter: 2004Q3

REPORT INFORMATION
  Report Type: 
  Country: None (occurrence: None)
  Receive Date: 20040903
  Receipt Date: 20040823
  Transmission Date: 20050211
  Serious: Yes (Hospitalization)
  Sender: FDA-Public Use
  Company Number: 2004CG01653

PATIENT
  Age: 47 Year
  Sex: Male

DRUGS (5)
  1. XYLOCAINE [Suspect]
  2. CARBOCAINE [Suspect]
  3. NO MATCH [Suspect]
  4. CEBESINE [Suspect]
  5. BETADINE 5% [Suspect]

REACTIONS (3)
  - ENDOPHTHALMITIS [None]
  - OFF LABEL USE [None]
  - POST PROCEDURAL COMPLICATION [None]
